FAERS Safety Report 8408898-7 (Version None)
Quarter: 2012Q2

REPORT INFORMATION
  Report Type: 
  Country: None (occurrence: None)
  Receive Date: 20120604
  Receipt Date: 20120312
  Transmission Date: 20120825
  Serious: No
  Sender: FDA-Public Use
  Company Number: US-NOVEN-12US004276

PATIENT
  Sex: Female
  Weight: 81.633 kg

DRUGS (12)
  1. RISPERDAL [Concomitant]
     Indication: ANXIETY
     Dosage: 10 MG, UNK
     Route: 048
  2. KLONOPIN [Concomitant]
     Indication: ANXIETY
     Dosage: 6 MG, UNK
     Route: 048
  3. JOLESSA [Concomitant]
     Indication: CONTRACEPTION
     Dosage: 1 TABLET
     Route: 048
  4. TOPAMAX [Concomitant]
     Indication: BINGE EATING
     Dosage: 50 MG, UNK
     Route: 048
  5. ABILIFY [Concomitant]
     Indication: DEPRESSION
     Dosage: 5 MG, UNK
     Route: 048
  6. NASONEX [Concomitant]
     Indication: DYSPNOEA
     Dosage: 50 UG, QID
     Route: 055
  7. STRATTERA [Concomitant]
     Indication: DEPRESSION
     Dosage: 25 MG, UNK
     Route: 048
  8. DAYTRANA [Suspect]
     Indication: DEPRESSION
     Dosage: 30 MG FOR 24 HOURS
     Route: 062
     Dates: start: 20100101
  9. STRATTERA [Concomitant]
     Indication: DISTURBANCE IN ATTENTION
  10. LAMICTAL [Concomitant]
     Indication: MOOD SWINGS
     Dosage: 25 MG, UNK
     Route: 048
  11. EFFEXOR XR [Concomitant]
     Indication: DEPRESSION
     Dosage: 150 MG, UNK
     Route: 048
  12. JOLESSA [Concomitant]
     Indication: PREMENSTRUAL SYNDROME

REACTIONS (4)
  - DRUG PRESCRIBING ERROR [None]
  - INCORRECT DRUG ADMINISTRATION DURATION [None]
  - NO ADVERSE EVENT [None]
  - OFF LABEL USE [None]
